FAERS Safety Report 21587693 (Version 2)
Quarter: 2022Q4

REPORT INFORMATION
  Report Type: Report from Study
  Country: JP (occurrence: None)
  Receive Date: 20221114
  Receipt Date: 20221116
  Transmission Date: 20230112
  Serious: Yes (Hospitalization)
  Sender: FDA-Public Use
  Company Number: JP-ROCHE-3214814

PATIENT
  Age: 57 Year
  Sex: Female
  Weight: 51 kg

DRUGS (4)
  1. ATEZOLIZUMAB [Suspect]
     Active Substance: ATEZOLIZUMAB
     Indication: Triple negative breast cancer
     Dosage: DOSE OF LAST ATEZOLIZUMAB ADMINISTERED PRIOR TO AE ONSET AT 840 MG, MOST RECENT DOSE OF ATEZOLIZUMAB
     Route: 041
     Dates: start: 20220628
  2. PACLITAXEL [Suspect]
     Active Substance: PACLITAXEL
     Indication: Triple negative breast cancer
     Dosage: DOSE OF LAST PACLITAXEL ADMINISTERED PRIOR TO AE ONSET AT 115.8 MG, MOST RECENT DOSE OF PACLITAXEL P
     Route: 042
     Dates: start: 20220628
  3. DOXORUBICIN [Suspect]
     Active Substance: DOXORUBICIN
     Indication: Triple negative breast cancer
     Dosage: DOSE OF LAST DOXORUBICIN ADMINISTERED PRIOR TO AE ONSET AT 87 MG, MOST RECENT DOSE OF DOXORUBICIN PR
     Route: 042
     Dates: start: 20220920
  4. CYCLOPHOSPHAMIDE [Suspect]
     Active Substance: CYCLOPHOSPHAMIDE
     Indication: Triple negative breast cancer
     Dosage: DOSE OF LAST CYCLOPHOSPHAMIDE ADMINISTERED PRIOR TO AE ONSET AT 876 MG, MOST RECENT DOSE OF CYCLOPHO
     Route: 042
     Dates: start: 20220920

REACTIONS (2)
  - Cerebral infarction [Recovering/Resolving]
  - Adrenal insufficiency [Not Recovered/Not Resolved]

NARRATIVE: CASE EVENT DATE: 20221104
